FAERS Safety Report 18807571 (Version 1)
Quarter: 2021Q1

REPORT INFORMATION
  Report Type: Spontaneous
  Country: US (occurrence: US)
  Receive Date: 20210129
  Receipt Date: 20210129
  Transmission Date: 20210419
  Serious: Yes (Other)
  Sender: FDA-Public Use
  Company Number: US-PFIZER INC-2021045842

PATIENT
  Age: 68 Year
  Sex: Female

DRUGS (31)
  1. FLUTICASONE. [Concomitant]
     Active Substance: FLUTICASONE
     Indication: RHINITIS ALLERGIC
     Dosage: 50 UG, 2 SPRAYS DAILY
  2. CALCIUM [Concomitant]
     Active Substance: CALCIUM
     Indication: SUPPLEMENTATION THERAPY
     Dosage: 500 MG CA + 700 IU VIT D, DAILY, (2 GUMMIES PO DAILY)
     Route: 048
  3. VITAMIN D [VITAMIN D NOS] [Concomitant]
     Active Substance: VITAMIN D NOS
     Indication: SUPPLEMENTATION THERAPY
     Dosage: 500 MG CA + 700 IU VIT D, DAILY, (2 GUMMIES PO DAILY)
     Route: 048
  4. GUAIFENESIN. [Concomitant]
     Active Substance: GUAIFENESIN
     Indication: COUGH
     Dosage: 600 MG, AS NEEDED, 1 TAB PO BID PRN
     Route: 048
  5. GUAIFENESIN. [Concomitant]
     Active Substance: GUAIFENESIN
     Indication: RESPIRATORY TRACT CONGESTION
  6. TACROLIMUS. [Interacting]
     Active Substance: TACROLIMUS
     Indication: IMMUNOSUPPRESSION
     Dosage: 0.5 MG, DAILY (1 CAP PO QAM)
     Route: 048
  7. LIDOCAINE. [Concomitant]
     Active Substance: LIDOCAINE
     Indication: PAIN
     Dosage: 1 DF (5 %)  DAILY, (1 PATCH ON SKIN DAILY; DISCARD AFTER)
     Route: 062
  8. MYCOPHENOLATE MOFETIL. [Concomitant]
     Active Substance: MYCOPHENOLATE MOFETIL
     Indication: IMMUNOSUPPRESSION
     Dosage: 250 MG, 2X/DAY(1 CAPSULE PO BID
     Route: 048
  9. POTASSIUM PHOSPHATE DIBASIC/SODIUM [Concomitant]
     Indication: HYPOPHOSPHATAEMIA
     Dosage: 280?160?250 MG,1 PACKET PO QID (WITH MEALS AND AT BED TIME)
     Route: 048
  10. ACETAMINOPHEN. [Concomitant]
     Active Substance: ACETAMINOPHEN
     Indication: PAIN
     Dosage: 325 MG, AS NEEDED, (2 TABS PO Q6H PRN)
     Route: 048
  11. MAGNESIUM GLYCINATE [Concomitant]
     Active Substance: MAGNESIUM GLYCINATE
     Indication: HYPOMAGNESAEMIA
     Dosage: 650 MG, DAILY (3 TABS PO QAN)
     Route: 048
  12. KETOCONAZOLE. [Concomitant]
     Active Substance: KETOCONAZOLE
     Indication: FUNGAL INFECTION
     Dosage: 2 %, APPLY UNDER BREASTS TO INFECTED
     Route: 061
  13. VALACYCLOVIR HCL [Concomitant]
     Active Substance: VALACYCLOVIR HYDROCHLORIDE
     Indication: HERPES SIMPLEX
     Dosage: 500 MG, 2X/DAY, (1 TAB PO BID)
     Route: 048
  14. FAMOTIDINE. [Concomitant]
     Active Substance: FAMOTIDINE
     Indication: GASTROOESOPHAGEAL REFLUX DISEASE
     Dosage: 20 MG, DAILY (1 TAB PO BID)
     Route: 048
  15. FENTANYL. [Concomitant]
     Active Substance: FENTANYL
     Indication: PAIN
     Dosage: 1 DF=12 MCG/HOUR; 1 PATCH ON SKIN EVERY 72 HOURS
  16. DILTIAZEM HCL [Interacting]
     Active Substance: DILTIAZEM HYDROCHLORIDE
     Indication: TACHYCARDIA
     Dosage: 240 MG, DAILY
     Route: 048
  17. AZITHROMYCIN ANHYDROUS. [Concomitant]
     Active Substance: AZITHROMYCIN ANHYDROUS
     Indication: INFECTION PROPHYLAXIS
     Dosage: 250 MG, 1 TAB  THREE TIMES WEEKLY
     Route: 048
  18. BUDESONIDE/FORMOTEROL [Concomitant]
     Active Substance: BUDESONIDE\FORMOTEROL
     Indication: ASTHMA
     Dosage: 160/4.5 MCG, 2X/DAY, INHALE
     Route: 055
  19. IPRATROPIUM BROMIDE. [Concomitant]
     Active Substance: IPRATROPIUM BROMIDE
     Indication: RHINITIS
     Dosage: 17 UG, 2 SPRAYS INTO EACH NOSTRIL BID PRN
  20. METOPROLOL TARTRATE. [Concomitant]
     Active Substance: METOPROLOL TARTRATE
     Indication: TACHYCARDIA
     Dosage: 37.5 MG, 1X/DAY IN THE MORNING
  21. METOPROLOL TARTRATE. [Concomitant]
     Active Substance: METOPROLOL TARTRATE
     Dosage: 25 MG, 1X/DAY AT BEDTIME
  22. CHOLECALCIFEROL [Concomitant]
     Active Substance: CHOLECALCIFEROL
     Indication: SUPPLEMENTATION THERAPY
     Dosage: 2000 IU, DAILY
     Route: 048
  23. FIBER GUMMIES [Concomitant]
     Active Substance: DIETARY SUPPLEMENT
     Indication: SUPPLEMENTATION THERAPY
     Dosage: 2.5 G FIBER + 500 IU VIT D (3 GUMMIES PO DAILY
     Route: 048
  24. VITAMIN D [VITAMIN D NOS] [Concomitant]
     Active Substance: VITAMIN D NOS
     Dosage: 2.5 G FIBER + 500 IU VIT D
  25. DILTIAZEM HCL [Interacting]
     Active Substance: DILTIAZEM HYDROCHLORIDE
     Dosage: 300 MG, DAILY
     Route: 048
  26. PREDNISONE. [Concomitant]
     Active Substance: PREDNISONE
     Indication: IMMUNOSUPPRESSION
     Dosage: 10 MG, DAILY
     Route: 048
  27. SULFAMETHOXAZOLE/TRIMETHOPRIM [Concomitant]
     Active Substance: SULFAMETHOXAZOLE\TRIMETHOPRIM
     Indication: INFECTION PROPHYLAXIS
     Dosage: 1 DF(800?160 MG); 1 TAB PO THREE TIMES WEEKLY
     Route: 048
  28. DILTIAZEM HCL [Suspect]
     Active Substance: DILTIAZEM HYDROCHLORIDE
     Indication: HYPERTENSION
     Dosage: 30 MG EVERY 6 HOURS
     Route: 048
     Dates: start: 201901
  29. FLUCONAZOLE. [Interacting]
     Active Substance: FLUCONAZOLE
     Indication: CANDIDA INFECTION
     Dosage: 400 MG, 1 TAB PO DAILY
     Route: 048
  30. ALENDRONATE SODIUM. [Concomitant]
     Active Substance: ALENDRONATE SODIUM
     Indication: OSTEOPOROSIS
     Dosage: 70 MG, WEEKLY
     Route: 048
  31. LANSOPRAZOLE. [Concomitant]
     Active Substance: LANSOPRAZOLE
     Indication: GASTROOESOPHAGEAL REFLUX DISEASE
     Dosage: 15 MG, DAILY, (1 TAB PO QAM BEFORE BREAKFAST)
     Route: 048

REACTIONS (4)
  - Drug interaction [Unknown]
  - Tachycardia [Unknown]
  - Immunosuppressant drug level increased [Unknown]
  - Intentional product misuse [Unknown]
